FAERS Safety Report 7583900-3 (Version None)
Quarter: 2011Q2

REPORT INFORMATION
  Report Type: 
  Country: None (occurrence: None)
  Receive Date: 20110623
  Receipt Date: 20110611
  Transmission Date: 20111010
  Serious: Yes (Other)
  Sender: FDA-Public Use
  Company Number: 2011AP001215

PATIENT
  Age: 52 Year
  Sex: Female

DRUGS (3)
  1. OMEPRAZOLE [Concomitant]
  2. MELOXICAM [Suspect]
     Indication: OSTEOARTHRITIS
     Dosage: 15 MG, QD
  3. LISINOPRIL [Concomitant]

REACTIONS (7)
  - IRON DEFICIENCY ANAEMIA [None]
  - VOMITING [None]
  - SMALL INTESTINAL STENOSIS [None]
  - HYPOALBUMINAEMIA [None]
  - CHANGE OF BOWEL HABIT [None]
  - CONSTIPATION [None]
  - SMALL INTESTINAL ULCER HAEMORRHAGE [None]
